FAERS Safety Report 25356523 (Version 1)
Quarter: 2025Q2

REPORT INFORMATION
  Report Type: Other
  Country: UA (occurrence: UA)
  Receive Date: 20250526
  Receipt Date: 20250526
  Transmission Date: 20250716
  Serious: Yes (Death, Hospitalization)
  Sender: ANI
  Company Number: UA-ANIPHARMA-022882

PATIENT
  Age: 4 Year
  Sex: Female

DRUGS (22)
  1. MORPHINE [Suspect]
     Active Substance: MORPHINE
     Indication: Multiple organ dysfunction syndrome
  2. DOBUTAMINE [Concomitant]
     Active Substance: DOBUTAMINE HYDROCHLORIDE
     Indication: Multiple organ dysfunction syndrome
  3. NOREPINEPHRINE [Concomitant]
     Active Substance: NOREPINEPHRINE
     Indication: Multiple organ dysfunction syndrome
  4. DOPAMINE [Concomitant]
     Active Substance: DOPAMINE HYDROCHLORIDE
     Indication: Multiple organ dysfunction syndrome
  5. LEVOSIMENDAN [Concomitant]
     Active Substance: LEVOSIMENDAN
     Indication: Multiple organ dysfunction syndrome
  6. HYDROCORTISONE [Concomitant]
     Active Substance: HYDROCORTISONE
     Indication: Multiple organ dysfunction syndrome
  7. DEXAMETHASONE [Concomitant]
     Active Substance: DEXAMETHASONE
     Indication: Multiple organ dysfunction syndrome
  8. CHLOROPYRAMINE [Concomitant]
     Active Substance: CHLOROPYRAMINE
     Indication: Multiple organ dysfunction syndrome
  9. DIAZEPAM [Concomitant]
     Active Substance: DIAZEPAM
     Indication: Multiple organ dysfunction syndrome
  10. MEROPENEM [Concomitant]
     Active Substance: MEROPENEM
     Indication: Sepsis
  11. CEFTRIAXONE [Concomitant]
     Active Substance: CEFTRIAXONE
     Indication: Evidence based treatment
     Route: 030
  12. LIDOCAINE [Concomitant]
     Active Substance: LIDOCAINE
     Indication: Evidence based treatment
     Route: 030
  13. MEROPENEM [Concomitant]
     Active Substance: MEROPENEM
     Indication: Haematotoxicity
  14. DIAZEPAM [Concomitant]
     Active Substance: DIAZEPAM
     Indication: Haemodynamic instability
  15. MORPHINE [Suspect]
     Active Substance: MORPHINE
     Indication: Haemodynamic instability
  16. DOBUTAMINE [Concomitant]
     Active Substance: DOBUTAMINE HYDROCHLORIDE
     Indication: Haemodynamic instability
  17. NOREPINEPHRINE [Concomitant]
     Active Substance: NOREPINEPHRINE
     Indication: Haemodynamic instability
  18. DOPAMINE [Concomitant]
     Active Substance: DOPAMINE HYDROCHLORIDE
     Indication: Haemodynamic instability
  19. LEVOSIMENDAN [Concomitant]
     Active Substance: LEVOSIMENDAN
     Indication: Haemodynamic instability
  20. HYDROCORTISONE [Concomitant]
     Active Substance: HYDROCORTISONE
     Indication: Haemodynamic instability
  21. DEXAMETHASONE [Concomitant]
     Active Substance: DEXAMETHASONE
     Indication: Haemodynamic instability
  22. CHLOROPYRAMINE [Concomitant]
     Active Substance: CHLOROPYRAMINE
     Indication: Haemodynamic instability

REACTIONS (1)
  - Drug ineffective [Fatal]
